FAERS Safety Report 15209051 (Version 2)
Quarter: 2018Q4

REPORT INFORMATION
  Report Type: Spontaneous
  Country: GB (occurrence: GB)
  Receive Date: 20180727
  Receipt Date: 20180815
  Transmission Date: 20190204
  Serious: Yes (Hospitalization)
  Sender: FDA-Public Use
  Company Number: GB-TEVA-2018-GB-930366

PATIENT
  Age: 27 Year
  Sex: Female
  Weight: 112.48 kg

DRUGS (15)
  1. CONTRACEPTIVE IMPLANT [Suspect]
     Active Substance: UNSPECIFIED INGREDIENT
     Indication: CONTRACEPTION
     Route: 065
  2. PREGABALIN. [Concomitant]
     Active Substance: PREGABALIN
  3. FOSTAIR [Concomitant]
     Active Substance: BECLOMETHASONE\FORMOTEROL
  4. ATROVENT [Concomitant]
     Active Substance: IPRATROPIUM BROMIDE
  5. SERTRALINE [Concomitant]
     Active Substance: SERTRALINE HYDROCHLORIDE
  6. VENTOLIN [Concomitant]
     Active Substance: ALBUTEROL SULFATE
  7. IBUPROFEN. [Concomitant]
     Active Substance: IBUPROFEN
  8. MONTELUKAST [Concomitant]
     Active Substance: MONTELUKAST SODIUM
  9. OMEPRAZOLE. [Concomitant]
     Active Substance: OMEPRAZOLE
  10. BUSCOPAN [Concomitant]
     Active Substance: BUTYLSCOPOLAMINE BROMIDE
  11. QUETIAPINE. [Concomitant]
     Active Substance: QUETIAPINE
  12. PARACETAMOL [Concomitant]
     Active Substance: ACETAMINOPHEN
  13. MULTIVITAMIN [Concomitant]
     Active Substance: VITAMINS
  14. LORATADINE. [Concomitant]
     Active Substance: LORATADINE
  15. TRIMETHOPRIM. [Suspect]
     Active Substance: TRIMETHOPRIM
     Indication: URINARY TRACT INFECTION
     Route: 048
     Dates: start: 201711, end: 201806

REACTIONS (4)
  - Maternal exposure during pregnancy [Unknown]
  - Drug interaction [Unknown]
  - Abortion spontaneous [Unknown]
  - Unintended pregnancy [Unknown]

NARRATIVE: CASE EVENT DATE: 201805
